FAERS Safety Report 10306993 (Version 1)
Quarter: 2014Q3

REPORT INFORMATION
  Report Type: Spontaneous
  Country: CA (occurrence: CA)
  Receive Date: 20140715
  Receipt Date: 20140715
  Transmission Date: 20150326
  Serious: Yes (Disabling)
  Sender: FDA-Public Use
  Company Number: CA-009507513-1407CAN005832

PATIENT
  Sex: Female

DRUGS (1)
  1. INTRON A [Suspect]
     Active Substance: INTERFERON ALFA-2B
     Indication: MALIGNANT MELANOMA
     Dosage: STRENGTH: 17 MUL, ROUTE: INJECTION, DAILY DOSE: UNKNOWN
     Route: 065
     Dates: start: 2014

REACTIONS (8)
  - Somnolence [Unknown]
  - Fall [Unknown]
  - Fatigue [Unknown]
  - Malaise [Unknown]
  - Nausea [Unknown]
  - Balance disorder [Unknown]
  - Dysgeusia [Unknown]
  - Injury [Unknown]

NARRATIVE: CASE EVENT DATE: 2014
